FAERS Safety Report 4475187-5 (Version None)
Quarter: 2004Q4

REPORT INFORMATION
  Report Type: 
  Country: None (occurrence: None)
  Receive Date: 20041015
  Receipt Date: 20041005
  Transmission Date: 20050328
  Serious: Yes (Hospitalization)
  Sender: FDA-Public Use
  Company Number: CA-BRISTOL-MYERS SQUIBB COMPANY-12721833

PATIENT
  Age: 67 Year
  Sex: Male
  Weight: 92 kg

DRUGS (3)
  1. CISPLATIN [Suspect]
     Indication: BLADDER CANCER
     Dates: start: 20040727, end: 20040727
  2. GEMCITABINE [Suspect]
     Indication: BLADDER CANCER
     Dates: start: 20040803, end: 20040803
  3. MANNITOL [Suspect]
     Indication: BLADDER CANCER
     Dates: start: 20040727, end: 20040727

REACTIONS (4)
  - DEEP VEIN THROMBOSIS [None]
  - ESCHERICHIA INFECTION [None]
  - NEUTROPENIA [None]
  - SEPSIS [None]
